FAERS Safety Report 13421662 (Version 1)
Quarter: 2017Q2

REPORT INFORMATION
  Report Type: Report from Study
  Country: CA (occurrence: CA)
  Receive Date: 20170410
  Receipt Date: 20170410
  Transmission Date: 20170830
  Serious: Yes (Hospitalization)
  Sender: FDA-Public Use
  Company Number: CA-ROCHE-1860328

PATIENT
  Age: 68 Year
  Sex: Male
  Weight: 74.7 kg

DRUGS (20)
  1. RITUXIMAB [Suspect]
     Active Substance: RITUXIMAB
     Indication: B-CELL LYMPHOMA
     Dosage: DATE OF MOST RECENT DOSE PRIOR TO THE EVENT ONSET: 08/NOV/2016 OF 735 MG WITH A START TIME OF 1115?D
     Route: 042
     Dates: start: 20160923
  2. MAXERAN [Concomitant]
     Active Substance: METOCLOPRAMIDE HYDROCHLORIDE
     Indication: NAUSEA
     Route: 065
     Dates: start: 20160930
  3. VINCRISTINE [Suspect]
     Active Substance: VINCRISTINE
     Indication: B-CELL LYMPHOMA
     Dosage: DATE OF MOST RECENT DOSE PRIOR TO THE EVENT ONSET: 08/NOV/2016 OF 2 MG WITH A START TIME OF 1438?WIT
     Route: 042
     Dates: start: 20160923
  4. PREDNISONE. [Suspect]
     Active Substance: PREDNISONE
     Indication: B-CELL LYMPHOMA
     Dosage: DATE OF MOST RECENT DOSE PRIOR TO THE EVENT ONSET: 12/NOV/2016?ROUTE, FREQUENCY PER PROTOCOL
     Route: 048
     Dates: start: 20160923
  5. PANTOLOC [Concomitant]
     Active Substance: PANTOPRAZOLE SODIUM
     Indication: DYSPEPSIA
     Route: 065
     Dates: start: 20160928
  6. MAXERAN [Concomitant]
     Active Substance: METOCLOPRAMIDE HYDROCHLORIDE
     Indication: DYSPEPSIA
  7. BENADRYL [Concomitant]
     Active Substance: DIPHENHYDRAMINE HYDROCHLORIDE
     Route: 065
     Dates: start: 20161212, end: 20161212
  8. NEUPOGEN [Concomitant]
     Active Substance: FILGRASTIM
     Indication: PROPHYLAXIS
     Route: 065
     Dates: start: 20161113, end: 20161119
  9. TYLENOL [Concomitant]
     Active Substance: ACETAMINOPHEN
     Indication: PREMEDICATION
     Route: 065
     Dates: start: 20161108, end: 20161108
  10. ZOFRAN [Concomitant]
     Active Substance: ONDANSETRON HYDROCHLORIDE
     Indication: PREMEDICATION
     Route: 065
     Dates: start: 20161108, end: 20161108
  11. SUCRETS COMPLETE [Concomitant]
     Active Substance: DYCLONINE HYDROCHLORIDE\MENTHOL
     Indication: COUGH
     Dosage: PASTILLES SUCRETS COMPLETE
     Route: 065
     Dates: start: 20161115, end: 20161124
  12. CYCLOPHOSPHAMIDE. [Suspect]
     Active Substance: CYCLOPHOSPHAMIDE
     Indication: B-CELL LYMPHOMA
     Dosage: DATE OF MOST RECENT DOSE PRIOR TO THE EVENT ONSET: 08/NOV/2016 OF 1470 MG WITH A START TIME OF 1500
     Route: 042
     Dates: start: 20160923
  13. ZOFRAN [Concomitant]
     Active Substance: ONDANSETRON HYDROCHLORIDE
     Route: 065
     Dates: start: 20161212, end: 20161212
  14. BENADRYL [Concomitant]
     Active Substance: DIPHENHYDRAMINE HYDROCHLORIDE
     Indication: PREMEDICATION
     Route: 065
     Dates: start: 20161108, end: 20161108
  15. DOXORUBICIN [Suspect]
     Active Substance: DOXORUBICIN
     Indication: B-CELL LYMPHOMA
     Dosage: DATE OF MOST RECENT DOSE PRIOR TO THE EVENT ONSET: 08/NOV/2016 OF 98 MG WITH A START TIME OF 1430?RO
     Route: 042
     Dates: start: 20160923
  16. NEUPOGEN [Concomitant]
     Active Substance: FILGRASTIM
     Route: 065
     Dates: start: 20161216, end: 20161222
  17. VENETOCLAX [Suspect]
     Active Substance: VENETOCLAX
     Indication: B-CELL LYMPHOMA
     Dosage: DATE OF MOST RECENT DOSE PRIOR TO THE EVENT ONSET: 17/NOV/2016 OF 400 MG
     Route: 048
     Dates: start: 20160926
  18. ATIVAN [Concomitant]
     Active Substance: LORAZEPAM
     Indication: INSOMNIA
     Route: 065
     Dates: start: 20160923
  19. TYLENOL [Concomitant]
     Active Substance: ACETAMINOPHEN
     Route: 065
     Dates: start: 20161212, end: 20161212
  20. INFLUVAC [Concomitant]
     Active Substance: INFLUENZA VIRUS VACCINE
     Indication: PROPHYLAXIS
     Route: 065
     Dates: start: 20161108, end: 20161108

REACTIONS (1)
  - Pneumocystis jirovecii pneumonia [Recovered/Resolved]

NARRATIVE: CASE EVENT DATE: 20161125
